FAERS Safety Report 6081578-1 (Version None)
Quarter: 2009Q1

REPORT INFORMATION
  Report Type: 
  Country: None (occurrence: None)
  Receive Date: 20090218
  Receipt Date: 20090211
  Transmission Date: 20090719
  Serious: Yes (Other)
  Sender: FDA-Public Use
  Company Number: PHHY2009BE04913

PATIENT

DRUGS (2)
  1. EXELON [Suspect]
     Dosage: 5 CM, UNK
  2. EXELON [Suspect]
     Dosage: 10 CM, UNK

REACTIONS (1)
  - MYOCLONUS [None]
